FAERS Safety Report 6715972-X (Version None)
Quarter: 2010Q2

REPORT INFORMATION
  Report Type: 
  Country: None (occurrence: None)
  Receive Date: 20100507
  Receipt Date: 20100423
  Transmission Date: 20101027
  Serious: Yes (Hospitalization, Other)
  Sender: FDA-Public Use
  Company Number: US-BAYER-200921527NA

PATIENT
  Age: 43 Year
  Sex: Female
  Weight: 60 kg

DRUGS (28)
  1. YASMIN [Suspect]
     Indication: CONTRACEPTION
     Route: 048
     Dates: start: 20041104, end: 20090101
  2. OCELLA [Suspect]
     Indication: DRUG USE FOR UNKNOWN INDICATION
     Route: 048
     Dates: start: 20051126, end: 20090101
  3. ANTIBIOTICS [Concomitant]
     Dosage: VAIROUS. SINCE 1984
  4. VITAMIN C [Concomitant]
     Dates: start: 20090101
  5. NSAID [Concomitant]
  6. EFFEXOR [Concomitant]
     Indication: PANIC ATTACK
     Dates: start: 19980101
  7. AMANTADINE HCL [Concomitant]
     Indication: PANIC ATTACK
     Dates: start: 19980101
  8. ORTHO-CEPT [Concomitant]
     Dates: start: 19970101
  9. DESOGEN [Concomitant]
     Dosage: THESE DATES OF TREATMENT WERE PROVIDED BY DOCTOR'S NOTE.
     Dates: start: 20040622, end: 20070101
  10. DESOGEN [Concomitant]
     Dates: start: 19940101, end: 19970101
  11. TERAZOSIN HCL [Concomitant]
     Dates: start: 20070522
  12. PROMETHEGAN [Concomitant]
  13. NORDETTE-21 [Concomitant]
     Dates: start: 19820101
  14. PROTONIX [Concomitant]
     Indication: PEPTIC ULCER
  15. DARVOCET [Concomitant]
     Indication: PAIN
     Dates: start: 20070101
  16. LACTATO DE RINGER [Concomitant]
     Route: 042
  17. SODIUM CHLORIDE [Concomitant]
     Route: 042
  18. PROMETHAZINE [Concomitant]
     Route: 054
  19. LIDOCAINE [Concomitant]
     Route: 042
  20. FENTANYL [Concomitant]
     Route: 042
  21. ONDANSETRON [Concomitant]
     Indication: NAUSEA
     Route: 042
  22. HYDROCODONE/ACETAMINO [Concomitant]
     Indication: PAIN
  23. ATROPINE [Concomitant]
  24. GLYCOPYRROLATE [Concomitant]
  25. PROPOFOL [Concomitant]
  26. NEOSTIGMINE [Concomitant]
  27. ROCURONIUM BROMIDE [Concomitant]
  28. CEFOXITIN [Concomitant]

REACTIONS (8)
  - ABDOMINAL PAIN [None]
  - ANXIETY [None]
  - CHOLELITHIASIS [None]
  - DYSPEPSIA [None]
  - FEAR [None]
  - HELICOBACTER TEST POSITIVE [None]
  - PAIN [None]
  - PEPTIC ULCER [None]
